FAERS Safety Report 8931478 (Version 1)
Quarter: 2012Q4

REPORT INFORMATION
  Report Type: 
  Country: US (occurrence: US)
  Receive Date: 20121121
  Receipt Date: 20121121
  Transmission Date: 20130627
  Serious: No
  Sender: FDA-Public Use
  Company Number: US-ASTELLAS-399806

PATIENT
  Sex: Female

DRUGS (1)
  1. TARCEVA [Suspect]
     Indication: PRODUCT USED FOR UNKNOWN INDICATION

REACTIONS (11)
  - Diarrhoea [Recovering/Resolving]
  - Rash [Recovering/Resolving]
  - Dry skin [Unknown]
  - Ocular hyperaemia [Unknown]
  - Stomatitis [Recovering/Resolving]
  - Cough [Unknown]
  - Vertigo [Recovering/Resolving]
  - Skin reaction [Unknown]
  - Oral disorder [Unknown]
  - Ocular hyperaemia [Unknown]
  - Eye pain [Unknown]
